FAERS Safety Report 17454907 (Version 1)
Quarter: 2020Q1

REPORT INFORMATION
  Report Type: Spontaneous
  Country: NO (occurrence: NO)
  Receive Date: 20200225
  Receipt Date: 20200225
  Transmission Date: 20200409
  Serious: Yes (Other)
  Sender: FDA-Public Use
  Company Number: NO-LEO PHARMA-328221

PATIENT
  Age: 66 Year
  Sex: Male
  Weight: 70 kg

DRUGS (1)
  1. PICATO [Suspect]
     Active Substance: INGENOL MEBUTATE
     Indication: PRODUCT USED FOR UNKNOWN INDICATION
     Dates: start: 20150213, end: 20150228

REACTIONS (2)
  - Squamous cell carcinoma of skin [Unknown]
  - Incorrect product administration duration [Unknown]
